FAERS Safety Report 4897094-6 (Version None)
Quarter: 2006Q1

REPORT INFORMATION
  Report Type: 
  Country: None (occurrence: None)
  Receive Date: 20060127
  Receipt Date: 20060113
  Transmission Date: 20060701
  Serious: Yes (Hospitalization)
  Sender: FDA-Public Use
  Company Number: 2006RR-01488

PATIENT
  Age: 55 Year
  Sex: Male
  Weight: 100 kg

DRUGS (15)
  1. ETODOLAC [Suspect]
     Indication: GOUT
     Dosage: 600 MG, QD, ORAL
     Route: 048
     Dates: start: 20050927
  2. RAMIPRIL [Suspect]
     Dosage: 5 MG, BID, ORAL
     Route: 048
     Dates: start: 20050927
  3. ALLOPURINOL TAB [Suspect]
     Indication: GOUT
     Dosage: 300 MG, QD, ORAL
     Route: 048
     Dates: start: 20050927
  4. CO-CODAMOL [Concomitant]
  5. OMEPRAZOLE [Concomitant]
  6. CIPROFLOXACIN 250 MG FILM-COATED TABLETS (CIPROFLOXACIN) TABLET [Concomitant]
  7. CETIRIZINE (CETIRIZINE) TABLET [Concomitant]
  8. CLOPIDOGREL [Concomitant]
  9. ATENOLOL TABLETS BP 50MG (ATENOLOL) TABLET [Concomitant]
  10. GTN-S [Concomitant]
  11. GAVISCON [Concomitant]
  12. BENDROFLUAZIDE (BENDROFLUMETHIAZIDE) [Concomitant]
  13. COLCHICINE [Concomitant]
  14. LOPERAMIDE HYDROCHLORIDE (LOPERAMIDE HYDROCHLORIDE) TABLET [Concomitant]
  15. SIMVASTATIN [Concomitant]

REACTIONS (3)
  - DIARRHOEA [None]
  - RENAL FAILURE ACUTE [None]
  - VOMITING [None]
